FAERS Safety Report 11790773 (Version 2)
Quarter: 2015Q4

REPORT INFORMATION
  Report Type: Spontaneous
  Country: BR (occurrence: BR)
  Receive Date: 20151201
  Receipt Date: 20151211
  Transmission Date: 20160305
  Serious: Yes (Death, Hospitalization)
  Sender: FDA-Public Use
  Company Number: BR-SA-2015SA197817

PATIENT
  Age: 79 Year
  Sex: Male
  Weight: 56 kg

DRUGS (2)
  1. TAXOTERE [Suspect]
     Active Substance: DOCETAXEL
     Indication: PROSTATE CANCER
     Route: 042
     Dates: start: 20150527
  2. DIAMOX SEQUELS [Concomitant]
     Active Substance: ACETAZOLAMIDE

REACTIONS (12)
  - Urethral obstruction [Fatal]
  - Septic shock [Fatal]
  - General physical health deterioration [Fatal]
  - Renal failure [Fatal]
  - Supraventricular tachycardia [Fatal]
  - Urinary tract injury [Fatal]
  - Hydrocephalus [Fatal]
  - Pneumonia [Fatal]
  - Febrile neutropenia [Fatal]
  - Depressed level of consciousness [Fatal]
  - Atrial fibrillation [Fatal]
  - Acute respiratory distress syndrome [Fatal]

NARRATIVE: CASE EVENT DATE: 2015
